FAERS Safety Report 21718292 (Version 3)
Quarter: 2023Q1

REPORT INFORMATION
  Report Type: Spontaneous
  Country: JP (occurrence: JP)
  Receive Date: 20221212
  Receipt Date: 20230327
  Transmission Date: 20230418
  Serious: Yes (Death)
  Sender: FDA-Public Use
  Company Number: JP-002147023-NVSJ2022JP276013

PATIENT
  Age: 97 Year
  Sex: Female
  Weight: 37 kg

DRUGS (5)
  1. GLYCOPYRROLATE\INDACATEROL\MOMETASONE FUROATE [Suspect]
     Active Substance: GLYCOPYRROLATE\INDACATEROL\MOMETASONE FUROATE
     Indication: Asthma
     Dosage: 1DF:INDACATEROL 150UG,GLYCOPYRRONIUM 50UG,AND MOMETASONE FUROATE 80UG, QD
     Dates: start: 20210925, end: 20211023
  2. SINGULAIR [Concomitant]
     Active Substance: MONTELUKAST SODIUM
     Indication: Asthma
     Dosage: 10 MG, QD
     Route: 048
     Dates: start: 20191102
  3. SPIRONOLACTONE [Concomitant]
     Active Substance: SPIRONOLACTONE
     Indication: Cardiac failure chronic
     Dosage: 25 MG, QD
     Route: 048
     Dates: start: 20191102
  4. DIAMOX SEQUELS [Concomitant]
     Active Substance: ACETAZOLAMIDE
     Indication: Cardiac failure chronic
     Dosage: 250 MG, QD
     Route: 048
     Dates: start: 20191102
  5. EPHEDRA SINICA STEM\HERBALS [Concomitant]
     Active Substance: EPHEDRA SINICA STEM\HERBALS
     Indication: Asthma
     Dosage: 3.0 G, TID
     Route: 065
     Dates: start: 20191102

REACTIONS (2)
  - Pulmonary hypertension [Fatal]
  - Cough [Recovering/Resolving]

NARRATIVE: CASE EVENT DATE: 20210925
